FAERS Safety Report 4633211-0 (Version None)
Quarter: 2005Q2

REPORT INFORMATION
  Report Type: 
  Country: None (occurrence: None)
  Receive Date: 20050412
  Receipt Date: 20050412
  Transmission Date: 20051028
  Serious: Yes (Life-Threatening, Hospitalization)
  Sender: FDA-Public Use
  Company Number: None

PATIENT
  Age: 43 Year
  Sex: Female
  Weight: 57 kg

DRUGS (15)
  1. RITUXIMAB [Suspect]
     Indication: GRAFT VERSUS HOST DISEASE
     Dosage: 375 MG/M2,  1/WEEKX4,  IV
     Route: 042
     Dates: start: 20040720
  2. RITUXIMAB [Suspect]
     Indication: GRAFT VERSUS HOST DISEASE
     Dosage: 375 MG/M2,  1/WEEKX4,  IV
     Route: 042
     Dates: start: 20040810
  3. PREDNISONE TAB [Concomitant]
  4. FOSAMAX [Concomitant]
  5. RAPAMUNE [Concomitant]
  6. AMITRIPTYLINE HCL [Concomitant]
  7. CELLCEPT [Concomitant]
  8. ACYCLOVIR [Concomitant]
  9. LEXAPRO [Concomitant]
  10. BETAMETHASONE [Concomitant]
  11. METHADONE HCL [Concomitant]
  12. DILAUDID [Concomitant]
  13. CLOBETASOL [Concomitant]
  14. BACTRIM [Concomitant]
  15. ELADIL [Concomitant]

REACTIONS (14)
  - ASTHMA [None]
  - CANDIDIASIS [None]
  - CONFUSIONAL STATE [None]
  - DRUG TOXICITY [None]
  - DYSPNOEA [None]
  - HERPES SIMPLEX [None]
  - HYPOXIA [None]
  - INFLUENZA [None]
  - LUNG INFILTRATION [None]
  - ORAL SOFT TISSUE DISORDER [None]
  - PNEUMONIA [None]
  - RESPIRATORY FAILURE [None]
  - SOMNOLENCE [None]
  - SUPERINFECTION [None]
